FAERS Safety Report 8549610-0 (Version None)
Quarter: 2012Q3

REPORT INFORMATION
  Report Type: 
  Country: None (occurrence: None)
  Receive Date: 20120730
  Receipt Date: 20120724
  Transmission Date: 20120928
  Serious: Yes (Other)
  Sender: FDA-Public Use
  Company Number: CA-ROCHE-1092544

PATIENT
  Age: 51 Year
  Sex: Female

DRUGS (10)
  1. NORVASC [Concomitant]
     Route: 065
  2. PROCHLORPERAZINE [Concomitant]
     Route: 065
  3. DECADRON [Concomitant]
     Route: 065
  4. XELODA [Suspect]
     Indication: PRODUCT USED FOR UNKNOWN INDICATION
     Route: 065
  5. DOCUSATE SODIUM [Concomitant]
     Route: 065
  6. LACTULOSE [Concomitant]
     Route: 065
  7. PANTOPRAZOLE SODIUM [Concomitant]
     Route: 065
  8. TYKERB [Suspect]
     Indication: PRODUCT USED FOR UNKNOWN INDICATION
     Route: 048
  9. METFORMIN HYDROCHLORIDE [Concomitant]
     Route: 065
  10. TYLENOL WITH CODEINE #3 (UNITED STATES) [Concomitant]
     Route: 065

REACTIONS (6)
  - DECREASED APPETITE [None]
  - VOMITING [None]
  - ASTHENIA [None]
  - DIARRHOEA [None]
  - INSOMNIA [None]
  - TONGUE DISCOLOURATION [None]
